FAERS Safety Report 17162626 (Version 3)
Quarter: 2019Q4

REPORT INFORMATION
  Report Type: Report from Study
  Country: KR (occurrence: KR)
  Receive Date: 20191217
  Receipt Date: 20191223
  Transmission Date: 20200122
  Serious: Yes (Death)
  Sender: FDA-Public Use
  Company Number: KR-CELLTRION INC.-2019KR027395

PATIENT

DRUGS (14)
  1. TRUXIMA [Suspect]
     Active Substance: RITUXIMAB-ABBS
     Indication: DIFFUSE LARGE B-CELL LYMPHOMA
     Dosage: 500 MG EVERY 3 WEEKS
     Route: 042
     Dates: start: 20191028, end: 20191028
  2. HERBEN [Concomitant]
     Active Substance: DILTIAZEM HYDROCHLORIDE
     Indication: HYPERTENSION
     Dosage: 1 TAB, QD
     Route: 048
     Dates: start: 2019
  3. ATOSAN [Concomitant]
     Indication: HYPERLIPIDAEMIA
     Dosage: 1 TAB, QD
     Route: 048
     Dates: start: 2018
  4. PLATELETS [Concomitant]
     Active Substance: HUMAN PLATELET, ALLOGENIC
     Indication: PLATELET COUNT DECREASED
     Dosage: 6 PACK, QD
     Route: 042
     Dates: start: 20191106, end: 20191106
  5. AMLODIPINE [Concomitant]
     Active Substance: AMLODIPINE BESYLATE
     Indication: HYPERTENSION
     Dosage: 5 MG, QD
     Route: 048
     Dates: start: 2018
  6. OMEPRAZOLE. [Concomitant]
     Active Substance: OMEPRAZOLE
     Indication: HYPERTENSION
     Dosage: 1 CAP, QD
     Route: 048
     Dates: start: 2019
  7. CALCIUM [Concomitant]
     Active Substance: CALCIUM
     Indication: HYPOCALCAEMIA
     Dosage: 3 AMP, QD
     Route: 042
     Dates: start: 20191105, end: 20191105
  8. POTASSIUM [Concomitant]
     Active Substance: POTASSIUM
     Indication: HYPOKALAEMIA
     Dosage: 1 AMP, QD
     Route: 042
     Dates: start: 20191105, end: 20191105
  9. GINEXIN-F [Concomitant]
     Indication: HYPERTENSION
     Dosage: 1 TAB, QD
     Route: 048
     Dates: start: 2018
  10. CHOP [Suspect]
     Active Substance: CYCLOPHOSPHAMIDE\DOXORUBICIN\PREDNISONE\VINCRISTINE
     Indication: DIFFUSE LARGE B-CELL LYMPHOMA
     Dosage: UNK
     Dates: start: 20191030
  11. GRASIN [Concomitant]
     Indication: NEUTROPHIL COUNT DECREASED
     Dosage: 300 MICROGRAM, QD
     Route: 042
     Dates: start: 20191104, end: 20191106
  12. NEPHRIS [Concomitant]
     Indication: PROPHYLAXIS URINARY TRACT INFECTION
     Dosage: 2 TAB, BID
     Route: 048
     Dates: start: 2019
  13. VASTINAN MR [Concomitant]
     Indication: HYPERTENSION
     Dosage: 1 TAB, QD
     Route: 048
     Dates: start: 2019
  14. CALDIPLUS [Concomitant]
     Indication: OSTEOPOROSIS
     Dosage: 1 TAB, QD
     Route: 048
     Dates: start: 2018

REACTIONS (1)
  - Septic shock [Fatal]

NARRATIVE: CASE EVENT DATE: 20191104
